FAERS Safety Report 13038303 (Version 1)
Quarter: 2016Q4

REPORT INFORMATION
  Report Type: Report from Study
  Country: None (occurrence: US)
  Receive Date: 20161219
  Receipt Date: 20161219
  Transmission Date: 20170207
  Serious: No
  Sender: FDA-Public Use
  Company Number: US-BIOVITRUM-2015US0366

PATIENT
  Age: 27 Year
  Sex: Female

DRUGS (1)
  1. KINERET [Suspect]
     Active Substance: ANAKINRA
     Indication: RHEUMATOID ARTHRITIS

REACTIONS (6)
  - Arthralgia [Unknown]
  - Pyrexia [Unknown]
  - Incorrect product storage [Unknown]
  - Peripheral swelling [Unknown]
  - Fatigue [Unknown]
  - Drug ineffective [None]

NARRATIVE: CASE EVENT DATE: 20150610
